FAERS Safety Report 7888174-1 (Version None)
Quarter: 2011Q4

REPORT INFORMATION
  Report Type: 
  Country: None (occurrence: None)
  Receive Date: 20111103
  Receipt Date: 20111031
  Transmission Date: 20120403
  Serious: Yes (Hospitalization)
  Sender: FDA-Public Use
  Company Number: US-SANOFI-AVENTIS-2011SA071402

PATIENT
  Age: 83 Year
  Sex: Male

DRUGS (2)
  1. UROXATRAL [Suspect]
     Indication: PROSTATIC DISORDER
     Route: 048
     Dates: end: 20110901
  2. ALL OTHER THERAPEUTIC PRODUCTS [Concomitant]

REACTIONS (3)
  - URINARY TRACT INFECTION [None]
  - SEPSIS [None]
  - PAIN [None]
